FAERS Safety Report 9344621 (Version 1)
Quarter: 2013Q2

REPORT INFORMATION
  Report Type: Report from Study
  Country: GB (occurrence: GB)
  Receive Date: 20130612
  Receipt Date: 20130612
  Transmission Date: 20140414
  Serious: Yes (Life-Threatening, Hospitalization, Other)
  Sender: FDA-Public Use
  Company Number: PHHY2013GB058497

PATIENT
  Age: 59 Year
  Sex: Female
  Weight: 99 kg

DRUGS (62)
  1. DOXORUBICIN HYDROCHLORIDE [Suspect]
     Indication: NON-HODGKIN^S LYMPHOMA UNSPECIFIED HISTOLOGY INDOLENT
     Route: 042
     Dates: start: 20120312
  2. DOXORUBICIN HYDROCHLORIDE [Suspect]
     Dosage: 100 MG, UNK
     Dates: start: 20120614
  3. VINCRISTINE SULFATE [Suspect]
     Indication: NON-HODGKIN^S LYMPHOMA UNSPECIFIED HISTOLOGY INDOLENT
     Route: 040
     Dates: start: 20120312
  4. VINCRISTINE SULFATE [Suspect]
     Dosage: 2 MG, UNK
     Dates: start: 20120614
  5. PREDNISOLONE [Suspect]
     Indication: NON-HODGKIN^S LYMPHOMA UNSPECIFIED HISTOLOGY INDOLENT
     Route: 048
     Dates: start: 20120312
  6. CYCLOPHOSPHAMIDE [Suspect]
     Indication: NON-HODGKIN^S LYMPHOMA UNSPECIFIED HISTOLOGY INDOLENT
     Route: 042
     Dates: start: 20120312
  7. CYCLOPHOSPHAMIDE [Suspect]
     Dosage: 1500 MG, UNK
     Dates: start: 20120614
  8. CYCLOPHOSPHAMIDE [Suspect]
     Dosage: 100 MG, UNK
     Dates: start: 20120618
  9. OBINUTUZUMAB [Suspect]
     Indication: NON-HODGKIN^S LYMPHOMA
     Route: 042
     Dates: start: 20120312
  10. OBINUTUZUMAB [Suspect]
     Dosage: VOLUME 250 ML AND DOSE 4 MG/ML
     Dates: start: 20120614
  11. FERROUS SULPHATE [Concomitant]
     Indication: ANAEMIA
     Dates: start: 20120626, end: 20120711
  12. FLUCLOXACILLIN [Concomitant]
     Dates: start: 20120609, end: 20120825
  13. PREDNISOLONE [Concomitant]
     Indication: DYSAESTHESIA PHARYNX
     Dates: start: 20120312
  14. UROKINASE [Concomitant]
     Dates: start: 20120611, end: 20120612
  15. FOLIC ACID [Concomitant]
     Indication: ANAEMIA
     Dates: start: 20120624, end: 20120704
  16. CORSODYL [Concomitant]
     Dates: start: 20120625, end: 20120627
  17. ORAMORPH [Concomitant]
     Indication: PAIN
     Dates: start: 20120624, end: 20120626
  18. CO-AMOXICLAV [Concomitant]
     Indication: URINARY TRACT INFECTION
     Dates: start: 20120827, end: 20120831
  19. FILGRASTIM [Concomitant]
     Indication: NEUTROPENIA
     Dates: start: 20120712, end: 20120712
  20. AMILORIDE HYDROCHLORIDE [Concomitant]
     Indication: FLUID RETENTION
     Dates: start: 20120713, end: 20120817
  21. SLOW-K [Concomitant]
     Indication: BLOOD POTASSIUM DECREASED
     Dates: start: 20120808, end: 20120810
  22. MEROPENEM [Concomitant]
     Indication: INFECTION
     Dates: start: 20120711, end: 20120810
  23. TAZOCIN [Concomitant]
     Dates: start: 20120701, end: 20120703
  24. GENTAMICIN SULFATE [Concomitant]
     Dates: start: 20120701, end: 20120702
  25. AMBISOME [Concomitant]
     Dates: start: 20120713, end: 20120713
  26. CHLORPHENAMINE MALEATE [Concomitant]
     Indication: ERYTHEMA
     Dates: start: 20120714
  27. HYDROCORTISONE [Concomitant]
     Dates: start: 20120708
  28. CHLORHEXIDINE GLUCONATE [Concomitant]
     Indication: MUCOSAL INFLAMMATION
     Dates: start: 20120711, end: 20120727
  29. SANDO K [Concomitant]
     Indication: BLOOD POTASSIUM DECREASED
     Dates: start: 20120714, end: 20120808
  30. CANESTEN [Concomitant]
     Indication: CANDIDA INFECTION
     Dates: start: 20120708, end: 20120726
  31. FUROSEMIDE [Concomitant]
     Indication: OEDEMA
     Dates: start: 20120624, end: 20120724
  32. LEVOMEPROMAZINE [Concomitant]
     Indication: OEDEMA
     Dates: start: 20120724, end: 20120724
  33. INSULIN [Concomitant]
     Indication: BLOOD GLUCOSE INCREASED
     Dates: start: 20120727, end: 20120727
  34. HALOPERIDOL [Concomitant]
     Indication: NAUSEA
     Dates: start: 20120904, end: 20120926
  35. DEXAMETHASONE [Concomitant]
     Dates: start: 20120702, end: 20120702
  36. METARAMINOL TARTRATE [Concomitant]
     Indication: HYPOTENSION
     Dates: start: 20120731, end: 20120731
  37. SPIRONOLACTONE [Concomitant]
     Dates: start: 20120730, end: 20120803
  38. METOCLOPRAMIDE [Concomitant]
     Indication: NAUSEA
     Dates: start: 20120410, end: 20120927
  39. GELOFUSINE [Concomitant]
  40. LAXIDO [Concomitant]
  41. GLUCOSE [Concomitant]
  42. MAGNESIUM [Concomitant]
  43. G-CSF [Concomitant]
  44. PHOSPHATE-SANDOZ [Concomitant]
  45. CALCIUM GLUCONATE [Concomitant]
     Indication: BLOOD CALCIUM DECREASED
     Dates: start: 20120722, end: 20120722
  46. CO-CODAMOL [Concomitant]
     Indication: OSTEOARTHRITIS
  47. LANSOPRAZOLE [Concomitant]
     Indication: HIATUS HERNIA
  48. QUININE SULFATE [Concomitant]
     Indication: NIGHT SWEATS
  49. HORMONIN [Concomitant]
     Indication: MENOPAUSAL SYMPTOMS
  50. NAPROXEN [Concomitant]
     Indication: OSTEOARTHRITIS
  51. SERTRALINE HYDROCHLORIDE [Concomitant]
     Indication: DEPRESSION
  52. ALLOPURINOL [Concomitant]
     Dates: start: 20120309
  53. DOMPERIDONE [Concomitant]
     Indication: NAUSEA
     Dates: start: 20120312
  54. PARACETAMOL [Concomitant]
     Indication: ARTHRALGIA
     Dates: start: 20120312
  55. ONDANSETRON [Concomitant]
     Indication: PROPHYLAXIS OF NAUSEA AND VOMITING
     Dates: start: 20120312
  56. NYSTATIN [Concomitant]
     Indication: ORAL CANDIDIASIS
     Dates: start: 20120609, end: 20120921
  57. CYCLIZINE [Concomitant]
     Indication: NAUSEA
     Dates: start: 20120604
  58. LORAZEPAM [Concomitant]
     Indication: ANXIETY
     Dates: start: 20120712, end: 20120713
  59. ACICLOVIR [Concomitant]
     Dates: start: 20120711, end: 20120727
  60. CLEXANE [Concomitant]
     Indication: PULMONARY EMBOLISM
     Dates: start: 20120713, end: 20120902
  61. WARFARIN SODIUM [Concomitant]
     Indication: PULMONARY EMBOLISM
     Dates: start: 20120918
  62. MIDAZOLAM [Concomitant]

REACTIONS (3)
  - Febrile neutropenia [Recovered/Resolved]
  - Infection [Recovered/Resolved]
  - Neutropenia [Recovered/Resolved]
